FAERS Safety Report 8373594-1 (Version None)
Quarter: 2012Q2

REPORT INFORMATION
  Report Type: 
  Country: None (occurrence: None)
  Receive Date: 20120521
  Receipt Date: 20120511
  Transmission Date: 20120825
  Serious: Yes (Other)
  Sender: FDA-Public Use
  Company Number: US-US-EMD SERONO, INC.-7132746

PATIENT
  Sex: Female

DRUGS (3)
  1. REBIF [Suspect]
     Indication: MULTIPLE SCLEROSIS
     Route: 058
     Dates: start: 20110211
  2. UNSPECIFIED MEDICATION [Concomitant]
     Indication: HYPERTENSION
     Dates: end: 20120101
  3. IBUPROFEN [Concomitant]
     Indication: PREMEDICATION

REACTIONS (4)
  - CEREBROVASCULAR ACCIDENT [None]
  - SKIN DISORDER [None]
  - CHILLS [None]
  - HYPOTENSION [None]
